FAERS Safety Report 10606044 (Version 1)
Quarter: 2014Q4

REPORT INFORMATION
  Report Type: Spontaneous
  Country: US (occurrence: US)
  Receive Date: 20141125
  Receipt Date: 20141125
  Transmission Date: 20150529
  Serious: Yes (Disabling)
  Sender: FDA-Public Use
  Company Number: US-ROCHE-1493716

PATIENT
  Sex: Female

DRUGS (2)
  1. DORZOLAMIDE [Interacting]
     Active Substance: DORZOLAMIDE
     Indication: MULTIPLE SCLEROSIS
     Route: 031
  2. LUCENTIS [Suspect]
     Active Substance: RANIBIZUMAB
     Indication: MACULAR OEDEMA
     Route: 050
     Dates: start: 2014

REACTIONS (4)
  - Visual impairment [Unknown]
  - Visual acuity reduced [Unknown]
  - Drug interaction [Unknown]
  - Optic neuritis [Not Recovered/Not Resolved]
